FAERS Safety Report 8326582-5 (Version None)
Quarter: 2012Q2

REPORT INFORMATION
  Report Type: 
  Country: None (occurrence: None)
  Receive Date: 20120501
  Receipt Date: 20090813
  Transmission Date: 20120825
  Serious: No
  Sender: FDA-Public Use
  Company Number: US-TEVA-2009009641

PATIENT
  Sex: Female

DRUGS (9)
  1. NUVIGIL [Suspect]
     Indication: MULTIPLE SCLEROSIS
     Dosage: 250 MILLIGRAM;
     Route: 048
     Dates: start: 20090724, end: 20090810
  2. LUNESTA [Concomitant]
     Indication: INSOMNIA
  3. CELEBREX [Concomitant]
     Indication: PAIN
  4. CYMBALTA [Concomitant]
     Indication: DEPRESSION
     Dates: start: 20080101
  5. CHANTIX [Concomitant]
     Indication: TOBACCO USER
     Dates: start: 20090601
  6. AVONEX [Concomitant]
     Indication: MULTIPLE SCLEROSIS
     Dates: start: 20090101
  7. CELEBREX [Concomitant]
     Indication: INFLAMMATION
     Dates: start: 20090101
  8. LEVOTHYROXINE SODIUM [Concomitant]
     Indication: HYPOTHYROIDISM
  9. AMBIEN [Concomitant]
     Indication: INSOMNIA
     Dates: start: 20080101

REACTIONS (2)
  - FEELING JITTERY [None]
  - ANXIETY [None]
